FAERS Safety Report 5441849-6 (Version None)
Quarter: 2007Q3

REPORT INFORMATION
  Report Type: 
  Country: None (occurrence: None)
  Receive Date: 20070904
  Receipt Date: 20070823
  Transmission Date: 20080115
  Serious: Yes (Other)
  Sender: FDA-Public Use
  Company Number: US-ELI_LILLY_AND_COMPANY-US200707006125

PATIENT
  Age: 55 Year
  Sex: Female

DRUGS (5)
  1. CYMBALTA [Suspect]
     Indication: FIBROMYALGIA
     Dosage: 30 MG, UNK
     Route: 048
     Dates: start: 20070401, end: 20070714
  2. CYMBALTA [Suspect]
     Dosage: 60 MG, UNK
     Route: 048
     Dates: start: 20070715, end: 20070721
  3. DURAGESIC-100 [Concomitant]
  4. XANAX [Concomitant]
     Dosage: 0.5 MG, UNK
  5. ADVIL                              /00109201/ [Concomitant]
     Dosage: 600 MG, AS NEEDED

REACTIONS (8)
  - ACCIDENTAL NEEDLE STICK [None]
  - ANGER [None]
  - CHOROIDAL NAEVUS [None]
  - EYE PAIN [None]
  - GLAUCOMA [None]
  - INTRAOCULAR PRESSURE INCREASED [None]
  - VISUAL DISTURBANCE [None]
  - VITREOUS DETACHMENT [None]
